FAERS Safety Report 16608011 (Version 1)
Quarter: 2019Q3

REPORT INFORMATION
  Report Type: Spontaneous
  Country: JP (occurrence: JP)
  Receive Date: 20190722
  Receipt Date: 20190722
  Transmission Date: 20191004
  Serious: Yes (Hospitalization)
  Sender: FDA-Public Use
  Company Number: JP-PFIZER INC-2019298860

PATIENT

DRUGS (1)
  1. RHEUMATREX [Suspect]
     Active Substance: METHOTREXATE SODIUM
     Dosage: 4 MG IN THURSDAY MORNING 2 MG IN THURSDAY EVENING AND 2 MG IN FRIDAY MORNING
     Route: 048

REACTIONS (1)
  - Dysphagia [Unknown]
